FAERS Safety Report 4474595-6 (Version None)
Quarter: 2004Q4

REPORT INFORMATION
  Report Type: 
  Country: None (occurrence: None)
  Receive Date: 20041008
  Receipt Date: 20040922
  Transmission Date: 20050328
  Serious: Yes (Other)
  Sender: FDA-Public Use
  Company Number: B0346025A

PATIENT
  Sex: Female

DRUGS (2)
  1. NAVELBINE [Suspect]
     Dosage: 25 MG/M2 / CYCLIC / INTRAVENOUS
     Route: 042
  2. EPIRUBICIN [Suspect]
     Dosage: 90 MG/M2 / CYCLIC / INTRAVENOUS
     Route: 042

REACTIONS (1)
  - ATRIAL FIBRILLATION [None]
